FAERS Safety Report 8322358-3 (Version None)
Quarter: 2012Q2

REPORT INFORMATION
  Report Type: 
  Country: None (occurrence: None)
  Receive Date: 20120426
  Receipt Date: 20120416
  Transmission Date: 20120825
  Serious: Yes (Other)
  Sender: FDA-Public Use
  Company Number: 2012-000606

PATIENT

DRUGS (1)
  1. DIDRONEL [Suspect]
     Indication: OSTEOPOROSIS
     Route: 048

REACTIONS (7)
  - ACUTE MYOCARDIAL INFARCTION [None]
  - PERIOSTITIS [None]
  - ARTERIOSCLEROSIS CORONARY ARTERY [None]
  - PRIMARY SEQUESTRUM [None]
  - OSTEOMYELITIS [None]
  - OSTEITIS [None]
  - JAW DISORDER [None]
